FAERS Safety Report 18210332 (Version 1)
Quarter: 2020Q3

REPORT INFORMATION
  Report Type: Spontaneous
  Country: US (occurrence: US)
  Receive Date: 20200829
  Receipt Date: 20200829
  Transmission Date: 20201103
  Serious: No
  Sender: FDA-Public Use
  Company Number: US-DRREDDYS-USA/USA/20/0126333

PATIENT
  Age: 29 Year
  Sex: Female

DRUGS (2)
  1. DILTIAZEM HYDROCHLORIDE. [Suspect]
     Active Substance: DILTIAZEM HYDROCHLORIDE
     Indication: MYOCARDIAL BRIDGING
  2. ACETYLSALICYLIC ACID [Concomitant]
     Active Substance: ASPIRIN
     Indication: MYOCARDIAL BRIDGING

REACTIONS (2)
  - Dizziness [Unknown]
  - Restless legs syndrome [Unknown]
